FAERS Safety Report 24815011 (Version 2)
Quarter: 2025Q1

REPORT INFORMATION
  Report Type: Report from Study
  Country: US (occurrence: US)
  Receive Date: 20250107
  Receipt Date: 20250122
  Transmission Date: 20250408
  Serious: Yes (Hospitalization)
  Sender: AMGEN
  Company Number: US-AMGEN-USASP2025000473

PATIENT
  Sex: Female

DRUGS (2)
  1. RAVICTI [Suspect]
     Active Substance: GLYCEROL PHENYLBUTYRATE
     Indication: Ornithine transcarbamoylase deficiency
     Dosage: 1.6 MILLILITER, QID (TAKE 1.6 ML FOUR TIMES DAILY WITH MEALS)
     Route: 065
     Dates: start: 20240110
  2. RAVICTI [Suspect]
     Active Substance: GLYCEROL PHENYLBUTYRATE
     Dosage: UNK UNK, BID
     Route: 065

REACTIONS (2)
  - Urinary tract infection [Unknown]
  - Malaise [Unknown]
